FAERS Safety Report 22079224 (Version 1)
Quarter: 2023Q1

REPORT INFORMATION
  Report Type: Spontaneous
  Country: US (occurrence: None)
  Receive Date: 20230309
  Receipt Date: 20230309
  Transmission Date: 20230418
  Serious: Yes (Other)
  Sender: FDA-Public Use
  Company Number: None

PATIENT
  Age: 16 Year
  Sex: Female
  Weight: 56.25 kg

DRUGS (1)
  1. RUCONEST [Suspect]
     Active Substance: HUMAN C1-ESTERASE INHIBITOR
     Indication: Hereditary angioedema with C1 esterase inhibitor deficiency
     Dosage: FREQUENCY : AS NEEDED;?
     Route: 042
     Dates: start: 20230306

REACTIONS (2)
  - Product preparation issue [None]
  - Product preparation error [None]

NARRATIVE: CASE EVENT DATE: 20230306
